FAERS Safety Report 14320936 (Version 2)
Quarter: 2018Q1

REPORT INFORMATION
  Report Type: Report from Study
  Country: GB (occurrence: GB)
  Receive Date: 20171223
  Receipt Date: 20180305
  Transmission Date: 20180509
  Serious: Yes (Death, Hospitalization, Other)
  Sender: FDA-Public Use
  Company Number: GB-AMGEN-GBRSL2017188379

PATIENT
  Age: 47 Year
  Sex: Female

DRUGS (1)
  1. ARANESP [Suspect]
     Active Substance: DARBEPOETIN ALFA
     Indication: PRODUCT USED FOR UNKNOWN INDICATION
     Dosage: 130 MUG, UNK
     Route: 065

REACTIONS (4)
  - Nosocomial infection [Unknown]
  - Death [Fatal]
  - Malaise [Unknown]
  - Diarrhoea infectious [Unknown]

NARRATIVE: CASE EVENT DATE: 20180301
